FAERS Safety Report 9471536 (Version 2)
Quarter: 2013Q3

REPORT INFORMATION
  Report Type: Spontaneous
  Country: IT (occurrence: IT)
  Receive Date: 20130822
  Receipt Date: 20130822
  Transmission Date: 20140515
  Serious: Yes (Other)
  Sender: FDA-Public Use
  Company Number: IT-WATSON-2013-07274

PATIENT
  Age: 54 Year
  Sex: Male

DRUGS (2)
  1. RAMIPRIL (UNKNOWN) [Suspect]
     Indication: HYPERTENSION
     Dosage: 2.5 MG, DAILY
     Route: 048
     Dates: start: 20130101, end: 20130324
  2. HYDROCHLOROTHIAZIDE (UNKNOWN) [Suspect]
     Indication: HYPERTENSION
     Dosage: 1 DF, DAILY
     Route: 048
     Dates: start: 20130101, end: 20130324

REACTIONS (2)
  - Headache [Recovering/Resolving]
  - Hypertensive crisis [Recovering/Resolving]
